FAERS Safety Report 7285351 (Version 3)
Quarter: 2016Q2

REPORT INFORMATION
  Report Type: Report from Study
  Country: SE (occurrence: SE)
  Receive Date: 20100219
  Receipt Date: 20160509
  Transmission Date: 20160815
  Serious: Yes (Hospitalization)
  Sender: FDA-Public Use
  Company Number: PHHO2010SE02528

PATIENT
  Age: 70 Year
  Sex: Male
  Weight: 85 kg

DRUGS (8)
  1. ALISKIREN [Suspect]
     Active Substance: ALISKIREN
     Dosage: 300 MG
     Route: 048
     Dates: start: 20100201, end: 20100213
  2. FOLIC ACID. [Concomitant]
     Active Substance: FOLIC ACID
  3. ENALAPRIL [Suspect]
     Active Substance: ENALAPRIL
     Indication: CARDIAC FAILURE
     Dosage: RUN IN PHASE
     Route: 048
  4. ALISKIREN [Suspect]
     Active Substance: ALISKIREN
     Indication: CARDIAC FAILURE
     Dosage: RUN IN PHASE
     Route: 048
  5. ENALAPRIL [Suspect]
     Active Substance: ENALAPRIL
     Dosage: 10 MG, BID
     Route: 048
     Dates: start: 20100201, end: 20100213
  6. WARFARIN [Concomitant]
     Active Substance: WARFARIN
  7. BISOPROLOL [Concomitant]
     Active Substance: BISOPROLOL
  8. ATACAND [Concomitant]
     Active Substance: CANDESARTAN CILEXETIL

REACTIONS (3)
  - Pancreatitis acute [Recovered/Resolved]
  - Abdominal pain upper [Recovered/Resolved]
  - Amylase increased [Recovered/Resolved]

NARRATIVE: CASE EVENT DATE: 20100212
